FAERS Safety Report 5354795-3 (Version None)
Quarter: 2007Q2

REPORT INFORMATION
  Report Type: 
  Country: None (occurrence: None)
  Receive Date: 20070611
  Receipt Date: 20070605
  Transmission Date: 20071010
  Serious: Yes (Hospitalization)
  Sender: FDA-Public Use
  Company Number: 2007AL002230

PATIENT
  Age: 34 Year
  Sex: Female

DRUGS (3)
  1. GABAPENTIN [Suspect]
     Indication: EPILEPSY
     Dosage: 5400 MG, QD;
  2. DEPARKIN [Concomitant]
  3. SABRIL [Concomitant]

REACTIONS (8)
  - ACCIDENTAL OVERDOSE [None]
  - AREFLEXIA [None]
  - CEREBRAL ATROPHY [None]
  - CEREBRAL VENTRICLE DILATATION [None]
  - CONVULSION [None]
  - MEDICATION ERROR [None]
  - MUSCLE TWITCHING [None]
  - STATUS EPILEPTICUS [None]
